FAERS Safety Report 26043616 (Version 1)
Quarter: 2025Q4

REPORT INFORMATION
  Report Type: Spontaneous
  Country: US (occurrence: US)
  Receive Date: 20251113
  Receipt Date: 20251113
  Transmission Date: 20260117
  Serious: No
  Sender: ELI LILLY AND COMPANY
  Company Number: US-ELI_LILLY_AND_COMPANY-US202511004204

PATIENT
  Age: 34 Year
  Sex: Female

DRUGS (3)
  1. EMGALITY [Suspect]
     Active Substance: GALCANEZUMAB-GNLM
     Indication: Migraine
     Dosage: 120 MG, MONTHLY (1/M)
     Route: 065
     Dates: start: 2023
  2. EMGALITY [Suspect]
     Active Substance: GALCANEZUMAB-GNLM
     Dosage: 120 MG, MONTHLY (1/M)
     Route: 065
     Dates: start: 20251101
  3. VOQUEZNA [Concomitant]
     Active Substance: VONOPRAZAN FUMARATE
     Indication: Gastrooesophageal reflux disease
     Dosage: UNK, UNKNOWN
     Route: 065
     Dates: start: 20241029

REACTIONS (1)
  - Incorrect dose administered by device [Unknown]

NARRATIVE: CASE EVENT DATE: 20251101
